FAERS Safety Report 6329532-6 (Version None)
Quarter: 2009Q3

REPORT INFORMATION
  Report Type: 
  Country: None (occurrence: None)
  Receive Date: 20090826
  Receipt Date: 20090814
  Transmission Date: 20100115
  Serious: Yes (Other)
  Sender: FDA-Public Use
  Company Number: US-ELI_LILLY_AND_COMPANY-US200908003730

PATIENT
  Age: 50 Year
  Sex: Female

DRUGS (4)
  1. CYMBALTA [Suspect]
     Dosage: 30 MG, UNK
     Dates: start: 20081201, end: 20081201
  2. CYMBALTA [Suspect]
     Dosage: 60 MG, UNK
     Dates: start: 20081201, end: 20090301
  3. ALBUTEROL [Concomitant]
  4. ALCOHOL [Concomitant]

REACTIONS (3)
  - HEPATIC ENZYME INCREASED [None]
  - PORTAL HYPERTENSION [None]
  - TREMOR [None]
